FAERS Safety Report 7775681-5 (Version None)
Quarter: 2011Q3

REPORT INFORMATION
  Report Type: 
  Country: None (occurrence: None)
  Receive Date: 20110923
  Receipt Date: 20110920
  Transmission Date: 20111222
  Serious: Yes (Other)
  Sender: FDA-Public Use
  Company Number: US-GLAXOSMITHKLINE-A0945312A

PATIENT
  Age: 81 Year
  Sex: Female

DRUGS (9)
  1. ADVAIR DISKUS 100/50 [Suspect]
     Indication: CHRONIC OBSTRUCTIVE PULMONARY DISEASE
     Dosage: 1PUFF TWICE PER DAY
     Route: 055
     Dates: start: 20080101
  2. PLAVIX [Concomitant]
  3. LIPITOR [Concomitant]
  4. LISINOPRIL [Concomitant]
  5. CONCURRENT MEDICATIONS [Concomitant]
  6. STATINS [Concomitant]
  7. ROPINIROLE [Concomitant]
  8. LASIX [Concomitant]
  9. METOPROLOL SUCCINATE [Concomitant]

REACTIONS (3)
  - BLOOD URINE PRESENT [None]
  - MELAENA [None]
  - DYSPHONIA [None]
